FAERS Safety Report 12766128 (Version 2)
Quarter: 2016Q4

REPORT INFORMATION
  Report Type: Spontaneous
  Country: IT (occurrence: IT)
  Receive Date: 20160921
  Receipt Date: 20161021
  Transmission Date: 20170207
  Serious: Yes (Other)
  Sender: FDA-Public Use
  Company Number: IT-PFIZER INC-2016438155

PATIENT
  Age: 67 Year
  Sex: Male

DRUGS (1)
  1. VFEND [Suspect]
     Active Substance: VORICONAZOLE
     Indication: ANTIFUNGAL PROPHYLAXIS
     Dosage: 200 MG, DAILY
     Dates: start: 20080717, end: 20110430

REACTIONS (2)
  - Product use issue [Unknown]
  - Basal cell carcinoma [Recovered/Resolved]

NARRATIVE: CASE EVENT DATE: 20130313
